FAERS Safety Report 5121619-9 (Version None)
Quarter: 2006Q4

REPORT INFORMATION
  Report Type: 
  Country: None (occurrence: None)
  Receive Date: 20061006
  Receipt Date: 20060831
  Transmission Date: 20070319
  Serious: Yes (Hospitalization)
  Sender: FDA-Public Use
  Company Number: TR-AVENTIS-200619533GDDC

PATIENT
  Sex: Male
  Weight: 90 kg

DRUGS (4)
  1. KETEK [Suspect]
     Indication: BRONCHITIS ACUTE
     Route: 048
     Dates: start: 20060822, end: 20060827
  2. AMBROL [Concomitant]
     Indication: BRONCHITIS ACUTE
     Route: 048
     Dates: start: 20060817
  3. DEKORT [Concomitant]
     Indication: METASTASIS
     Route: 042
     Dates: start: 20060817
  4. NEVOFAM [Concomitant]
     Route: 042
     Dates: start: 20060817

REACTIONS (4)
  - MUCOSAL INFLAMMATION [None]
  - RASH [None]
  - STEVENS-JOHNSON SYNDROME [None]
  - URTICARIA [None]
